FAERS Safety Report 16321677 (Version 1)
Quarter: 2019Q2

REPORT INFORMATION
  Report Type: Spontaneous
  Country: HR (occurrence: HR)
  Receive Date: 20190516
  Receipt Date: 20190516
  Transmission Date: 20190711
  Serious: Yes (Other)
  Sender: FDA-Public Use
  Company Number: HR-JNJFOC-20190517603

PATIENT
  Sex: Male

DRUGS (5)
  1. BELFORMIN [Concomitant]
     Indication: DIABETES MELLITUS
     Route: 048
  2. PRYLAR [Concomitant]
     Indication: HYPERTENSION
     Route: 048
  3. URSOFALK [Concomitant]
     Active Substance: URSODIOL
     Route: 048
  4. XARELTO [Suspect]
     Active Substance: RIVAROXABAN
     Indication: THROMBOSIS
     Route: 048
     Dates: start: 20181203, end: 201812
  5. XARELTO [Suspect]
     Active Substance: RIVAROXABAN
     Indication: THROMBOSIS
     Route: 048
     Dates: start: 201812, end: 20190106

REACTIONS (5)
  - Hepatic pain [Not Recovered/Not Resolved]
  - Chromaturia [Recovering/Resolving]
  - Blood urine present [Recovering/Resolving]
  - Renal pain [Not Recovered/Not Resolved]
  - Urinary bladder haemorrhage [Recovering/Resolving]

NARRATIVE: CASE EVENT DATE: 201812
